FAERS Safety Report 4620171-1 (Version None)
Quarter: 2005Q1

REPORT INFORMATION
  Report Type: 
  Country: None (occurrence: None)
  Receive Date: 20050323
  Receipt Date: 20050323
  Transmission Date: 20050727
  Serious: Yes (Death)
  Sender: FDA-Public Use
  Company Number: None

PATIENT
  Sex: Female
  Weight: 58.9676 kg

DRUGS (7)
  1. CYMBALTA [Suspect]
     Indication: DEPRESSION
     Dosage: 60 MG   DAILY   ORAL
     Route: 048
     Dates: start: 20040921, end: 20041012
  2. SPIRONOLACTONE [Concomitant]
  3. LEVOXYL [Concomitant]
  4. TOPAMAX [Concomitant]
  5. ACYCLOVIR [Concomitant]
  6. DESIPRAMIDE HCL [Concomitant]
  7. PROZAC [Concomitant]

REACTIONS (3)
  - COMPLETED SUICIDE [None]
  - GUN SHOT WOUND [None]
  - THERAPY NON-RESPONDER [None]
